FAERS Safety Report 9764310 (Version 2)
Quarter: 2014Q2

REPORT INFORMATION
  Report Type: Report from Study
  Country: DE (occurrence: DE)
  Receive Date: 20131217
  Receipt Date: 20140425
  Transmission Date: 20141212
  Serious: Yes (Hospitalization)
  Sender: FDA-Public Use
  Company Number: DE-ROCHE-1319772

PATIENT
  Age: 76 Year
  Sex: Male

DRUGS (1)
  1. VEMURAFENIB [Suspect]
     Indication: METASTATIC MALIGNANT MELANOMA
     Dosage: DATE OF MOST RECENT DOSE OF VEMURAFENIB (960 MG) PRIOR TO AE ONSET: 12/JUN/2013
     Route: 048
     Dates: start: 20130404

REACTIONS (1)
  - Presyncope [Recovered/Resolved]
